FAERS Safety Report 4307537-4 (Version None)
Quarter: 2004Q1

REPORT INFORMATION
  Report Type: 
  Country: None (occurrence: None)
  Receive Date: 20040226
  Receipt Date: 20040220
  Transmission Date: 20041129
  Serious: Yes (Life-Threatening, Hospitalization)
  Sender: FDA-Public Use
  Company Number: 2004CG00366

PATIENT
  Age: 86 Year
  Sex: Female

DRUGS (5)
  1. NEXIUM [Suspect]
     Indication: ABDOMINAL PAIN UPPER
     Dates: end: 20040207
  2. GAVISCON [Concomitant]
  3. DITROPAN [Concomitant]
  4. MICROLAX [Concomitant]
  5. CACIT D3 [Concomitant]

REACTIONS (6)
  - COMA [None]
  - HYPOCHLORAEMIA [None]
  - HYPOKALAEMIA [None]
  - HYPONATRAEMIA [None]
  - NAUSEA [None]
  - VOMITING [None]
